FAERS Safety Report 25144649 (Version 2)
Quarter: 2025Q2

REPORT INFORMATION
  Report Type: Spontaneous
  Country: KR (occurrence: KR)
  Receive Date: 20250401
  Receipt Date: 20250409
  Transmission Date: 20250717
  Serious: Yes (Disabling, Other)
  Sender: GILEAD
  Company Number: KR-GILEAD-2025-0708966

PATIENT
  Age: 53 Year
  Sex: Female

DRUGS (1)
  1. TRODELVY [Suspect]
     Active Substance: SACITUZUMAB GOVITECAN-HZIY
     Indication: Metastases to lung
     Route: 065
     Dates: start: 202407

REACTIONS (1)
  - Disease progression [Unknown]

NARRATIVE: CASE EVENT DATE: 20250219
